FAERS Safety Report 16594754 (Version 1)
Quarter: 2019Q3

REPORT INFORMATION
  Report Type: Spontaneous
  Country: US (occurrence: US)
  Receive Date: 20190718
  Receipt Date: 20190718
  Transmission Date: 20191004
  Serious: No
  Sender: FDA-Public Use
  Company Number: US-SWEDISH ORPHAN BIOVITRUM-2019US0284

PATIENT
  Age: 8 Year
  Sex: Male

DRUGS (2)
  1. KINERET [Suspect]
     Active Substance: ANAKINRA
     Indication: PYREXIA
     Route: 058
     Dates: start: 20190107
  2. KINERET [Suspect]
     Active Substance: ANAKINRA
     Indication: AUTOIMMUNE DISORDER

REACTIONS (7)
  - Product dose omission [Unknown]
  - Pyrexia [Unknown]
  - Condition aggravated [Unknown]
  - Autoimmune disorder [Unknown]
  - Injection site rash [Unknown]
  - Injection site erythema [Unknown]
  - Rash generalised [Unknown]

NARRATIVE: CASE EVENT DATE: 20190116
